FAERS Safety Report 15661498 (Version 1)
Quarter: 2018Q4

REPORT INFORMATION
  Report Type: Spontaneous
  Country: CN (occurrence: CN)
  Receive Date: 20181127
  Receipt Date: 20181127
  Transmission Date: 20190205
  Serious: Yes (Death)
  Sender: FDA-Public Use
  Company Number: CN-ASTRAZENECA-2018SF41969

PATIENT
  Sex: Male

DRUGS (2)
  1. LOSEC [Suspect]
     Active Substance: OMEPRAZOLE
     Route: 048
     Dates: start: 201807
  2. OMEPRAZOLE SODIUM [Suspect]
     Active Substance: OMEPRAZOLE SODIUM
     Route: 042

REACTIONS (11)
  - Weight decreased [Unknown]
  - Abdominal distension [Unknown]
  - Nausea [Unknown]
  - Vomiting [Unknown]
  - Death [Fatal]
  - Ascites [Unknown]
  - Swelling [Unknown]
  - Decreased appetite [Unknown]
  - Dysphagia [Unknown]
  - Dyspepsia [Unknown]
  - Peripheral swelling [Unknown]
